FAERS Safety Report 22666868 (Version 2)
Quarter: 2023Q4

REPORT INFORMATION
  Report Type: Spontaneous
  Country: DE (occurrence: DE)
  Receive Date: 20230704
  Receipt Date: 20231010
  Transmission Date: 20240110
  Serious: Yes (Death, Hospitalization, Other)
  Sender: FDA-Public Use
  Company Number: DE-Accord-286233

PATIENT
  Age: 44 Year
  Sex: Male

DRUGS (1)
  1. TEMOZOLOMIDE [Suspect]
     Active Substance: TEMOZOLOMIDE
     Indication: Glioblastoma
     Dosage: RECEIVED A TOTAL OF MORE THAN 180 CONTINUOUS TMZ CYCLES

REACTIONS (3)
  - Nausea [Unknown]
  - Disease progression [Fatal]
  - Malignant glioma [Fatal]
